FAERS Safety Report 5553980-5 (Version None)
Quarter: 2007Q4

REPORT INFORMATION
  Report Type: 
  Country: None (occurrence: None)
  Receive Date: 20071212
  Receipt Date: 20071212
  Transmission Date: 20080405
  Serious: Yes (Disabling)
  Sender: FDA-Public Use
  Company Number: None

PATIENT
  Sex: Male
  Weight: 77.1115 kg

DRUGS (2)
  1. ARAVA [Suspect]
     Indication: POLYCHONDRITIS
     Dosage: 20 MG EACH DAY ORAL
     Route: 048
     Dates: start: 20061226
  2. ARAVA [Suspect]
     Indication: POLYCHONDRITIS
     Dosage: 20 MG EACH DAY ORAL
     Route: 048
     Dates: start: 20070904

REACTIONS (1)
  - POLYNEUROPATHY [None]
